FAERS Safety Report 19998842 (Version 1)
Quarter: 2021Q4

REPORT INFORMATION
  Report Type: Report from Study
  Country: US (occurrence: US)
  Receive Date: 20211026
  Receipt Date: 20211026
  Transmission Date: 20220303
  Serious: Yes (Other)
  Sender: FDA-Public Use
  Company Number: US-JAZZ-2021-US-020026

PATIENT
  Age: 37 Year
  Sex: Female

DRUGS (9)
  1. XYREM [Suspect]
     Active Substance: SODIUM OXYBATE
     Indication: Narcolepsy
     Dosage: 2.25 GRAM, BID
     Route: 048
     Dates: start: 201909, end: 201910
  2. XYREM [Suspect]
     Active Substance: SODIUM OXYBATE
     Dosage: DOSE ADJUSTMENT
     Route: 048
     Dates: start: 201909, end: 2021
  3. XYREM [Suspect]
     Active Substance: SODIUM OXYBATE
     Dosage: 3.5G ONCE OR TWICE NIGHTLY
     Route: 048
     Dates: start: 2021
  4. HYDROXYZINE [Suspect]
     Active Substance: HYDROXYZINE HYDROCHLORIDE
     Indication: Product used for unknown indication
  5. PEPCID COMPLETE [Concomitant]
     Active Substance: CALCIUM CARBONATE\FAMOTIDINE\MAGNESIUM HYDROXIDE
     Indication: Product used for unknown indication
     Dosage: 0000
     Dates: start: 20191016
  6. ZINC GLUCONATE [Concomitant]
     Active Substance: ZINC GLUCONATE
     Indication: Product used for unknown indication
     Dosage: 0000
     Dates: start: 20200601
  7. VITAMIN D3 [Concomitant]
     Active Substance: CHOLECALCIFEROL
     Indication: Product used for unknown indication
     Dosage: 0000
     Dates: start: 20200601
  8. VITAMIN C [Concomitant]
     Active Substance: ASCORBIC ACID
     Indication: Product used for unknown indication
     Dosage: 0000
     Dates: start: 20200601
  9. QUERCETIN DIHYDRATE [Concomitant]
     Indication: Product used for unknown indication
     Dosage: 0000
     Dates: start: 20200601

REACTIONS (8)
  - Uterine disorder [Not Recovered/Not Resolved]
  - Hepatic steatosis [Unknown]
  - COVID-19 [Unknown]
  - Hiatus hernia [Unknown]
  - Rash [Unknown]
  - Vomiting [Unknown]
  - Sedation [Unknown]
  - Intentional product use issue [Unknown]

NARRATIVE: CASE EVENT DATE: 20210601
